FAERS Safety Report 5534033-9 (Version None)
Quarter: 2007Q4

REPORT INFORMATION
  Report Type: 
  Country: None (occurrence: None)
  Receive Date: 20071205
  Receipt Date: 20071126
  Transmission Date: 20080405
  Serious: Yes (Other)
  Sender: FDA-Public Use
  Company Number: PHEH2007US15301

PATIENT
  Sex: Female

DRUGS (1)
  1. TERBINAFINE HCL [Suspect]
     Route: 065

REACTIONS (5)
  - EYELID OEDEMA [None]
  - GENERALISED OEDEMA [None]
  - RASH [None]
  - SWELLING FACE [None]
  - THYROID DISORDER [None]
